FAERS Safety Report 4549697-6 (Version None)
Quarter: 2005Q1

REPORT INFORMATION
  Report Type: 
  Country: None (occurrence: None)
  Receive Date: 20050110
  Receipt Date: 20041228
  Transmission Date: 20050727
  Serious: Yes (Hospitalization)
  Sender: FDA-Public Use
  Company Number: 2004121965

PATIENT
  Age: 59 Year
  Sex: Female
  Weight: 81.6475 kg

DRUGS (6)
  1. CELEBREX [Suspect]
     Indication: GOUTY ARTHRITIS
     Dosage: 400 MG (200 MG, 2 IN 1 D), ORAL
     Route: 048
     Dates: start: 20010101
  2. LEVOTHYROXINE SODIUM [Concomitant]
  3. HYZAAR [Concomitant]
  4. DYAZIDE [Concomitant]
  5. ULTRACET [Concomitant]
  6. ALPRAZOLAM [Concomitant]

REACTIONS (6)
  - CEREBROVASCULAR ACCIDENT [None]
  - KIDNEY INFECTION [None]
  - LUNG NEOPLASM MALIGNANT [None]
  - MEDICATION ERROR [None]
  - PAIN [None]
  - STRESS [None]
